FAERS Safety Report 6136474-8 (Version None)
Quarter: 2009Q1

REPORT INFORMATION
  Report Type: 
  Country: None (occurrence: None)
  Receive Date: 20090325
  Receipt Date: 20090308
  Transmission Date: 20090719
  Serious: Yes (Other)
  Sender: FDA-Public Use
  Company Number: 2005S1006748

PATIENT
  Age: 73 Year
  Sex: Female
  Weight: 66.6788 kg

DRUGS (11)
  1. PHOSPHOSODA GINGER LEMON [Suspect]
     Indication: COLONOSCOPY
     Dosage: 90 ML; TOTAL; PO
     Route: 048
     Dates: start: 20031210, end: 20031210
  2. TOPROL-XL [Concomitant]
  3. LOTREL [Concomitant]
  4. DETROL /01350201/ [Concomitant]
  5. HYDROCHLOROTHIAZIDE [Concomitant]
  6. ASPIRIN [Concomitant]
  7. SYNTHROID [Concomitant]
  8. CALCIUM [Concomitant]
  9. VITAMIN A [Concomitant]
  10. EVISTA /01303201/ [Concomitant]
  11. ADVICOR [Concomitant]

REACTIONS (6)
  - ANAEMIA OF CHRONIC DISEASE [None]
  - BACK PAIN [None]
  - INFLUENZA LIKE ILLNESS [None]
  - RENAL FAILURE ACUTE [None]
  - RENAL FAILURE CHRONIC [None]
  - RENAL TUBULAR NECROSIS [None]
